FAERS Safety Report 19003397 (Version 2)
Quarter: 2021Q1

REPORT INFORMATION
  Report Type: Spontaneous
  Country: JP (occurrence: JP)
  Receive Date: 20210312
  Receipt Date: 20210323
  Transmission Date: 20210420
  Serious: Yes (Other)
  Sender: FDA-Public Use
  Company Number: JP-TEVA-2021-JP-001073J

PATIENT
  Age: 65 Year
  Sex: Female

DRUGS (1)
  1. PIOGLITAZONE TABLET [TOWA] [Suspect]
     Active Substance: PIOGLITAZONE HYDROCHLORIDE
     Indication: DIABETES MELLITUS INADEQUATE CONTROL
     Route: 065

REACTIONS (1)
  - Renal impairment [Unknown]
